FAERS Safety Report 8821108 (Version 3)
Quarter: 2013Q2

REPORT INFORMATION
  Report Type: Spontaneous
  Country: JP (occurrence: JP)
  Receive Date: 20121002
  Receipt Date: 20130618
  Transmission Date: 20140414
  Serious: Yes (Hospitalization)
  Sender: FDA-Public Use
  Company Number: JP-GLAXOSMITHKLINE-B0825070A

PATIENT
  Age: 41 Year
  Sex: Male

DRUGS (11)
  1. LAMICTAL [Suspect]
     Indication: BIPOLAR DISORDER
     Dosage: 25MG TWICE PER DAY
     Route: 048
     Dates: start: 20110902
  2. LAMICTAL [Suspect]
     Indication: BIPOLAR DISORDER
     Route: 048
     Dates: end: 20111106
  3. LAMICTAL [Suspect]
     Indication: BIPOLAR DISORDER
     Dosage: 200MG TWICE PER DAY
     Route: 048
     Dates: start: 20111107, end: 20120820
  4. HALRACK [Concomitant]
     Indication: INSOMNIA
     Dosage: .25MG PER DAY
     Route: 048
     Dates: start: 20091211, end: 20120820
  5. LEXOTAN [Concomitant]
     Indication: ANXIETY
     Route: 048
     Dates: start: 20100521, end: 20110901
  6. LEXOTAN [Concomitant]
     Indication: ANXIETY
     Route: 048
     Dates: start: 20110902
  7. LEXOTAN [Concomitant]
     Indication: ANXIETY
     Dosage: 2MG TWICE PER DAY
     Route: 048
     Dates: end: 20120820
  8. LIMAS [Concomitant]
     Indication: BIPOLAR DISORDER
     Route: 048
     Dates: start: 20110708, end: 20110901
  9. LIMAS [Concomitant]
     Indication: BIPOLAR DISORDER
     Route: 048
     Dates: start: 20110902
  10. LIMAS [Concomitant]
     Indication: BIPOLAR DISORDER
     Dosage: 100MG PER DAY
     Route: 048
     Dates: end: 20120820
  11. MILNACIPRAN HYDROCHLORIDE [Concomitant]
     Route: 048

REACTIONS (15)
  - Stevens-Johnson syndrome [Unknown]
  - Drug reaction with eosinophilia and systemic symptoms [Recovered/Resolved]
  - Erythema multiforme [Unknown]
  - Laryngeal oedema [Unknown]
  - Ocular hyperaemia [Unknown]
  - Eczema [Unknown]
  - Oral mucosa erosion [Unknown]
  - Rash [Unknown]
  - General physical health deterioration [Unknown]
  - Face oedema [Unknown]
  - Pyrexia [Unknown]
  - Neutrophil percentage increased [Unknown]
  - Lymphocyte percentage decreased [Unknown]
  - White blood cell count increased [Unknown]
  - C-reactive protein increased [Unknown]
